FAERS Safety Report 11473949 (Version 1)
Quarter: 2015Q3

REPORT INFORMATION
  Report Type: Spontaneous
  Country: US (occurrence: None)
  Receive Date: 20150902
  Receipt Date: 20150902
  Transmission Date: 20151125
  Serious: Yes (Disabling)
  Sender: FDA-Public Use
  Company Number: A-NJ2015-113832

PATIENT
  Age: 16 Year
  Sex: Female

DRUGS (12)
  1. ADCIRCA [Suspect]
     Active Substance: TADALAFIL
     Indication: PRODUCT USED FOR UNKNOWN INDICATION
  2. ZOFRAN (ONDANSETRON HYDROCHLORIDE) [Concomitant]
  3. LETAIRIS [Suspect]
     Active Substance: AMBRISENTAN
     Indication: PULMONARY HYPERTENSION
     Dates: start: 20130904
  4. DAILY VITAMINS (VITAMINS NOS) [Concomitant]
  5. LASIX [Concomitant]
     Active Substance: FUROSEMIDE
  6. CLARITIN [Concomitant]
     Active Substance: LORATADINE
  7. CLEOCIN (CLINDAMYCIN HYDROCHLORIDE) [Concomitant]
  8. VELETRI [Suspect]
     Active Substance: EPOPROSTENOL
     Indication: PULMONARY ARTERIAL HYPERTENSION
     Dosage: 28.5 NG/KG/MIN, 61ML/24 HR, INTRAVENOUS
     Route: 042
     Dates: start: 201404
  9. PEPCID (ALUMINIUM HYDROXIDE, MAGNESIUM TRISILICATE, SODIUM ALGINATE) [Concomitant]
  10. ALDACTONE [Concomitant]
     Active Substance: SPIRONOLACTONE
  11. COUMADIN [Concomitant]
     Active Substance: WARFARIN SODIUM
  12. K-DUR [Concomitant]
     Active Substance: POTASSIUM CHLORIDE

REACTIONS (1)
  - Palpitations [None]

NARRATIVE: CASE EVENT DATE: 20150202
